FAERS Safety Report 9771075 (Version 2)
Quarter: 2014Q1

REPORT INFORMATION
  Report Type: Spontaneous
  Country: AR (occurrence: AR)
  Receive Date: 20131218
  Receipt Date: 20140131
  Transmission Date: 20141002
  Serious: Yes (Other)
  Sender: FDA-Public Use
  Company Number: AR-PFIZER INC-2013362169

PATIENT
  Age: 63 Year
  Sex: Female

DRUGS (6)
  1. RAPAMUNE [Suspect]
     Indication: RENAL TRANSPLANT
     Dosage: 3 MG, 1X/DAY
     Dates: start: 20020102, end: 20131219
  2. ATENOLOL [Concomitant]
     Dosage: 50 MG, 1X/DAY
  3. LEVOTHYROXINE [Concomitant]
     Dosage: 75 MG, 1X/DAY
  4. TAURAL [Concomitant]
     Indication: GASTRITIS PROPHYLAXIS
     Dosage: UNK
  5. SIMVASTATIN [Concomitant]
     Dosage: UNK
  6. ASPIRINETAS [Concomitant]
     Dosage: UNK

REACTIONS (2)
  - Fall [Not Recovered/Not Resolved]
  - Hip fracture [Not Recovered/Not Resolved]
